FAERS Safety Report 17557423 (Version 2)
Quarter: 2021Q1

REPORT INFORMATION
  Report Type: Spontaneous
  Country: US (occurrence: US)
  Receive Date: 20200318
  Receipt Date: 20210224
  Transmission Date: 20210419
  Serious: Yes (Death, Life-Threatening, Hospitalization, Other)
  Sender: FDA-Public Use
  Company Number: US-BAYER-2020-044434

PATIENT
  Age: 42 Year
  Sex: Male

DRUGS (3)
  1. DIPHENHYDRAMINE. [Suspect]
     Active Substance: DIPHENHYDRAMINE
     Route: 048
  2. ACETYLSALICYLIC ACID [Suspect]
     Active Substance: ASPIRIN
     Dosage: UNK
     Route: 048
  3. QUETIAPINE. [Interacting]
     Active Substance: QUETIAPINE
     Route: 048

REACTIONS (7)
  - Confusional state [Unknown]
  - Mental status changes [Unknown]
  - Toxicity to various agents [Fatal]
  - Intentional overdose [Fatal]
  - Cardiac arrest [Fatal]
  - Tachypnoea [Unknown]
  - Drug interaction [None]
